FAERS Safety Report 8198983-X (Version None)
Quarter: 2012Q1

REPORT INFORMATION
  Report Type: 
  Country: None (occurrence: None)
  Receive Date: 20120309
  Receipt Date: 20120301
  Transmission Date: 20120608
  Serious: Yes (Death, Life-Threatening, Hospitalization, Disabling)
  Sender: FDA-Public Use
  Company Number: CH-JNJFOC-20110305190

PATIENT
  Sex: Male

DRUGS (5)
  1. INFLIXIMAB, RECOMBINANT [Suspect]
     Route: 042
  2. CORTICOSTEROIDS NOS [Concomitant]
  3. INFLIXIMAB, RECOMBINANT [Suspect]
     Indication: COLITIS ULCERATIVE
     Route: 042
     Dates: start: 20030908, end: 20090902
  4. IMMUNOMODULATORS [Concomitant]
  5. IMMUNOSUPPRESSIVES [Concomitant]

REACTIONS (3)
  - COLORECTAL CANCER METASTATIC [None]
  - HAEMORRHAGE [None]
  - COLITIS ULCERATIVE [None]
